FAERS Safety Report 9198417 (Version 1)
Quarter: 2013Q1

REPORT INFORMATION
  Report Type: Spontaneous
  Country: US (occurrence: None)
  Receive Date: 20130327
  Receipt Date: 20130327
  Transmission Date: 20140127
  Serious: Yes (Hospitalization)
  Sender: FDA-Public Use
  Company Number: None

PATIENT
  Age: 20 Year
  Sex: Female
  Weight: 55.79 kg

DRUGS (1)
  1. ORENCIA [Suspect]
     Indication: RHEUMATOID ARTHRITIS
     Dosage: 1 ML  1 PER WEEK SQ
     Route: 058
     Dates: start: 20130131, end: 20130314

REACTIONS (3)
  - Lethargy [None]
  - Depression [None]
  - Suicidal ideation [None]
